FAERS Safety Report 8419610-X (Version None)
Quarter: 2012Q2

REPORT INFORMATION
  Report Type: 
  Country: None (occurrence: None)
  Receive Date: 20120607
  Receipt Date: 20120604
  Transmission Date: 20120825
  Serious: Yes (Other)
  Sender: FDA-Public Use
  Company Number: TW-MERCK-1205USA04044

PATIENT
  Sex: Female

DRUGS (1)
  1. PROSCAR [Suspect]
     Indication: BENIGN PROSTATIC HYPERPLASIA
     Route: 048
     Dates: start: 20120516, end: 20120501

REACTIONS (2)
  - MATERNAL EXPOSURE DURING PREGNANCY [None]
  - MEDICATION ERROR [None]
